FAERS Safety Report 13139191 (Version 2)
Quarter: 2017Q1

REPORT INFORMATION
  Report Type: Spontaneous
  Country: KR (occurrence: KR)
  Receive Date: 20170123
  Receipt Date: 20170314
  Transmission Date: 20170428
  Serious: Yes (Death, Hospitalization, Other)
  Sender: FDA-Public Use
  Company Number: KR-009507513-1701KOR008834

PATIENT
  Age: 62 Year
  Sex: Male
  Weight: 58.8 kg

DRUGS (19)
  1. CISPLATIN. [Concomitant]
     Active Substance: CISPLATIN
     Indication: LUNG NEOPLASM MALIGNANT
     Dosage: STRENGTH: 10MG/20ML, DOSE: 66.4 MG, ONCE, CYCLE:2
     Route: 042
     Dates: start: 20160331, end: 20160331
  2. DREAMPHARMA SODIUM FUSIDATE [Concomitant]
     Indication: PROPHYLAXIS
     Dosage: 1 TU, QD
     Route: 003
     Dates: start: 20160330, end: 20160416
  3. DEXAMETHASONE YUHANMEDICA [Concomitant]
     Indication: PROPHYLAXIS
     Dosage: 4 MG, QD
     Route: 048
     Dates: start: 20160328, end: 20160410
  4. ALBIS [Concomitant]
     Active Substance: BISMUTH SUBCITRATE\RANITIDINE HYDROCHLORIDE\SUCRALFATE
     Indication: PROPHYLAXIS
     Dosage: 1 TABLET, TWICE A DAY
     Route: 048
     Dates: start: 20160328, end: 20160416
  5. DEXA S [Concomitant]
     Indication: PREMEDICATION
     Dosage: 12 MG, FREQUENCY: 1; STRENGTH: 5MG/ML
     Route: 042
     Dates: start: 20160331, end: 20160331
  6. SAMA TANTUM GARGLE [Concomitant]
     Active Substance: BENZYDAMINE HYDROCHLORIDE
     Indication: PROPHYLAXIS
     Dosage: 1 BTL, QD, ROUTE: GARGLE
     Dates: start: 20160328, end: 20160411
  7. HEPARIN CHOONGWAE [Concomitant]
     Indication: PROPHYLAXIS
     Dosage: STRENGTH: 25000IU/5ML; 1 ML, FREQUENCY: 1
     Route: 042
     Dates: start: 20160408, end: 20160408
  8. ALOXI [Concomitant]
     Active Substance: PALONOSETRON HYDROCHLORIDE
     Indication: PREMEDICATION
     Dosage: 0.25 ML, FREQUENCY: 1
     Route: 042
     Dates: start: 20160331, end: 20160331
  9. DEXA S [Concomitant]
     Dosage: 8 MG, ONCE, STRENGTH: 5MG/ML
     Route: 042
     Dates: start: 20160401, end: 20160401
  10. D-MANNITOL DAIHAN [Concomitant]
     Indication: PROPHYLAXIS
     Dosage: STRENGTH:15% 100 ML; 70 MG, FREQUENCY: 1
     Route: 042
     Dates: start: 20160331, end: 20160331
  11. DUPHALAC [Concomitant]
     Active Substance: LACTULOSE
     Indication: CONSTIPATION
     Dosage: 15 ML, TID
     Route: 048
     Dates: start: 20160331, end: 20160415
  12. EMEND (FOSAPREPITANT DIMEGLUMINE) [Suspect]
     Active Substance: FOSAPREPITANT DIMEGLUMINE
     Indication: PROPHYLAXIS OF NAUSEA AND VOMITING
     Dosage: 150 MG, ONCE
     Route: 042
     Dates: start: 20160308, end: 20160308
  13. ALIMTA [Concomitant]
     Active Substance: PEMETREXED DISODIUM
     Indication: LUNG NEOPLASM MALIGNANT
     Dosage: 830 MG, FREQUENCY: 1; CYCLE:2
     Route: 042
     Dates: start: 20160331, end: 20160331
  14. NAITRAL [Concomitant]
     Indication: PROPHYLAXIS
     Dosage: 1 TU, QD
     Route: 003
     Dates: start: 20160330, end: 20160415
  15. MEDILAC DS [Concomitant]
     Indication: PROPHYLAXIS
     Dosage: 1 CAPSULE, TID
     Route: 048
     Dates: start: 20160402, end: 20160415
  16. GASLON [Concomitant]
     Active Substance: IRSOGLADINE MALEATE
     Indication: PROPHYLAXIS
     Dosage: 1 TABLET (4 MG), QD
     Route: 048
     Dates: start: 20160321, end: 20160328
  17. MEGACE F [Concomitant]
     Indication: DECREASED APPETITE
     Dosage: 1 PK, QD
     Route: 048
     Dates: start: 20160321, end: 20160415
  18. EMEND (FOSAPREPITANT DIMEGLUMINE) [Suspect]
     Active Substance: FOSAPREPITANT DIMEGLUMINE
     Dosage: 150 MG, ONCE
     Route: 042
     Dates: start: 20160331, end: 20160331
  19. IRCODON [Concomitant]
     Indication: PAIN
     Dosage: 1 TABLET, FOUR TIMES A DAY
     Route: 048
     Dates: start: 20160402, end: 20160402

REACTIONS (1)
  - Acute kidney injury [Fatal]

NARRATIVE: CASE EVENT DATE: 20160408
